FAERS Safety Report 9448403 (Version 1)
Quarter: 2013Q3

REPORT INFORMATION
  Report Type: Spontaneous
  Country: US (occurrence: US)
  Receive Date: 20130808
  Receipt Date: 20130808
  Transmission Date: 20140515
  Serious: Yes (Other)
  Sender: FDA-Public Use
  Company Number: US-PFIZER INC-2013226879

PATIENT
  Sex: Male

DRUGS (3)
  1. ZYVOX [Suspect]
     Indication: BACTERAEMIA
     Dosage: UNK
  2. ZYVOX [Suspect]
     Indication: ENDOCARDITIS BACTERIAL
  3. PRIMACOR [Suspect]
     Indication: CARDIAC DISORDER
     Dosage: UNK

REACTIONS (3)
  - Endocarditis bacterial [Unknown]
  - Condition aggravated [Unknown]
  - Drug dose omission [Unknown]
